FAERS Safety Report 18911158 (Version 2)
Quarter: 2021Q1

REPORT INFORMATION
  Report Type: Spontaneous
  Country: US (occurrence: US)
  Receive Date: 20210218
  Receipt Date: 20210226
  Transmission Date: 20210420
  Serious: Yes (Hospitalization)
  Sender: FDA-Public Use
  Company Number: US-VISTAPHARM, INC.-VER202102-000734

PATIENT
  Age: 69 Year
  Sex: Male

DRUGS (8)
  1. GABAPENTIN. [Suspect]
     Active Substance: GABAPENTIN
     Dosage: REDUCED TO 900 MG 3 TIMES A DAY (TID)
  2. NORTRIPTYLINE [Concomitant]
     Active Substance: NORTRIPTYLINE
     Indication: NEUROPATHY PERIPHERAL
  3. GABAPENTIN. [Suspect]
     Active Substance: GABAPENTIN
     Dosage: 800 MG OF GABAPENTIN TID
  4. TOPIRAMATE. [Concomitant]
     Active Substance: TOPIRAMATE
     Indication: NEUROPATHY PERIPHERAL
  5. GABAPENTIN. [Suspect]
     Active Substance: GABAPENTIN
     Indication: NEUROPATHY PERIPHERAL
     Dosage: 2400 MG 4 TIMES DAILY (TOTAL, 9600 MG DAILY),
  6. PROPRANOLOL [Concomitant]
     Active Substance: PROPRANOLOL HYDROCHLORIDE
     Indication: NEUROPATHY PERIPHERAL
  7. GABAPENTIN. [Suspect]
     Active Substance: GABAPENTIN
     Dosage: 600 MG TID (RESTARTED)
  8. LIDOCAINE. [Concomitant]
     Active Substance: LIDOCAINE
     Indication: PAIN
     Dosage: UNKNOWN
     Route: 061

REACTIONS (12)
  - Myoclonus [Recovering/Resolving]
  - Binocular eye movement disorder [Unknown]
  - Tremor [Recovering/Resolving]
  - Diplopia [Unknown]
  - Muscle spasms [Unknown]
  - Toxicity to various agents [Unknown]
  - Drug withdrawal syndrome [Unknown]
  - Product use in unapproved indication [Unknown]
  - Myokymia [Recovering/Resolving]
  - Gait disturbance [Recovering/Resolving]
  - Tremor [Unknown]
  - Prescribed overdose [Unknown]
